FAERS Safety Report 6125456-8 (Version None)
Quarter: 2009Q1

REPORT INFORMATION
  Report Type: 
  Country: None (occurrence: None)
  Receive Date: 20090320
  Receipt Date: 20090310
  Transmission Date: 20090719
  Serious: Yes (Other)
  Sender: FDA-Public Use
  Company Number: PHEH2009US02475

PATIENT
  Age: 82 Year
  Sex: Female

DRUGS (2)
  1. ENABLEX [Suspect]
     Route: 048
  2. THYROID PREPARATIONS [Concomitant]

REACTIONS (2)
  - DRY MOUTH [None]
  - THYROID DISORDER [None]
